FAERS Safety Report 6565539-1 (Version None)
Quarter: 2010Q1

REPORT INFORMATION
  Report Type: 
  Country: None (occurrence: None)
  Receive Date: 20100201
  Receipt Date: 20091221
  Transmission Date: 20100710
  Serious: Yes (Hospitalization)
  Sender: FDA-Public Use
  Company Number: US-ELI_LILLY_AND_COMPANY-US201001006206

PATIENT
  Sex: Male
  Weight: 127.89 kg

DRUGS (4)
  1. DULOXETINE HYDROCHLORIDE [Suspect]
     Indication: MAJOR DEPRESSION
     Dosage: UNK, DAILY (1/D)
     Route: 048
     Dates: start: 20090806
  2. Z-PAK [Concomitant]
     Indication: BACTERIAL INFECTION
     Dates: start: 20091220
  3. ACYCLOVIR [Concomitant]
     Indication: VIRAL INFECTION
     Dates: start: 20091221
  4. GUAIFENESIN/CODEINE [Concomitant]
     Indication: COUGH
     Dates: start: 20091218, end: 20091220

REACTIONS (1)
  - STEVENS-JOHNSON SYNDROME [None]
